FAERS Safety Report 4740434-9 (Version None)
Quarter: 2005Q3

REPORT INFORMATION
  Report Type: 
  Country: None (occurrence: None)
  Receive Date: 20050729
  Receipt Date: 20050428
  Transmission Date: 20060218
  Serious: Yes (Hospitalization)
  Sender: FDA-Public Use
  Company Number: COT_0053_2005

PATIENT
  Age: 62 Year
  Sex: Female
  Weight: 78.4723 kg

DRUGS (4)
  1. VENTAVIS [Suspect]
     Indication: PULMONARY HYPERTENSION
     Dosage: 2.5 MCG ONCE IH
     Dates: start: 20050428, end: 20050428
  2. VENTAVIS [Suspect]
     Indication: PULMONARY HYPERTENSION
     Dosage: DF IH
  3. SYNTHROID [Concomitant]
  4. COUMADIN [Concomitant]

REACTIONS (2)
  - CHEST PAIN [None]
  - PULMONARY EMBOLISM [None]
